FAERS Safety Report 11663552 (Version 1)
Quarter: 2015Q4

REPORT INFORMATION
  Report Type: Report from Study
  Country: US (occurrence: US)
  Receive Date: 20151027
  Receipt Date: 20151027
  Transmission Date: 20160304
  Serious: Yes (Hospitalization)
  Sender: FDA-Public Use
  Company Number: PHEH2014US015196

PATIENT
  Sex: Female
  Weight: 112.9 kg

DRUGS (1)
  1. GLEEVEC [Suspect]
     Active Substance: IMATINIB MESYLATE
     Indication: PRODUCT USED FOR UNKNOWN INDICATION
     Dosage: 400 MG, QD (1 TABLET AT BED TIME)
     Route: 048

REACTIONS (6)
  - Bone pain [Unknown]
  - Decreased appetite [Unknown]
  - White blood cell disorder [Unknown]
  - Gingival bleeding [Unknown]
  - Alopecia [Unknown]
  - Malaise [Unknown]
